FAERS Safety Report 9928268 (Version 4)
Quarter: 2014Q1

REPORT INFORMATION
  Report Type: Spontaneous
  Country: DE (occurrence: DE)
  Receive Date: 20140227
  Receipt Date: 20140331
  Transmission Date: 20141002
  Serious: Yes (Hospitalization, Other)
  Sender: FDA-Public Use
  Company Number: DE-BAYER-2014-021925

PATIENT
  Age: 57 Year
  Sex: Male
  Weight: 88 kg

DRUGS (5)
  1. XARELTO [Suspect]
     Dosage: 20 MG, QD
     Dates: start: 20130523, end: 201312
  2. ASS [Interacting]
     Dosage: 500 MG, ONCE
     Dates: start: 20131212
  3. APIXABAN [Concomitant]
     Indication: ATRIAL FIBRILLATION
     Dosage: 2.5 MG, BID
     Dates: start: 201312
  4. BISOPROLOL [Concomitant]
     Indication: ATRIAL FIBRILLATION
     Dosage: 5 MG, QD
  5. AMIODARON [Concomitant]
     Indication: ATRIAL FIBRILLATION
     Dosage: 200 MG, QD
     Dates: start: 201310, end: 20140103

REACTIONS (5)
  - Pericardial haemorrhage [Recovered/Resolved]
  - Dyspnoea exertional [Recovered/Resolved]
  - Chest discomfort [Recovered/Resolved]
  - Epistaxis [None]
  - Drug interaction [None]
